FAERS Safety Report 9688447 (Version 2)
Quarter: 2013Q4

REPORT INFORMATION
  Report Type: Report from Study
  Country: US (occurrence: US)
  Receive Date: 20131114
  Receipt Date: 20131114
  Transmission Date: 20140711
  Serious: Yes (Hospitalization)
  Sender: FDA-Public Use
  Company Number: US-TAKEDA-TPA2012A02161

PATIENT
  Age: 57 Year
  Sex: Male
  Weight: 77.4 kg

DRUGS (5)
  1. PEGINESATIDE [Suspect]
     Indication: NEPHROGENIC ANAEMIA
     Route: 042
     Dates: start: 20120402, end: 20120402
  2. PEGINESATIDE [Suspect]
     Route: 065
     Dates: start: 20120227, end: 20120402
  3. NORVASC [Concomitant]
  4. ASPIRIN [Concomitant]
  5. METOPROLOL [Concomitant]

REACTIONS (1)
  - Urinary tract infection [Recovered/Resolved]
